FAERS Safety Report 7446835-2 (Version None)
Quarter: 2011Q2

REPORT INFORMATION
  Report Type: 
  Country: None (occurrence: None)
  Receive Date: 20110429
  Receipt Date: 20101028
  Transmission Date: 20111010
  Serious: No
  Sender: FDA-Public Use
  Company Number: US-ASTRAZENECA-2010SE49514

PATIENT
  Sex: Female

DRUGS (8)
  1. AMOXICILLIN [Concomitant]
  2. VITAMINS [Concomitant]
  3. NEXIUM [Suspect]
     Indication: HELICOBACTER INFECTION
     Route: 048
     Dates: start: 20101016
  4. SULAR [Concomitant]
  5. ASPIRIN [Concomitant]
  6. BIAXIN [Concomitant]
  7. MICARDIS [Concomitant]
  8. HYDRALAZINE HCL [Concomitant]

REACTIONS (4)
  - TREMOR [None]
  - FEELING ABNORMAL [None]
  - NERVOUSNESS [None]
  - DYSSTASIA [None]
